FAERS Safety Report 13242051 (Version 1)
Quarter: 2017Q1

REPORT INFORMATION
  Report Type: Spontaneous
  Country: US (occurrence: US)
  Receive Date: 20170217
  Receipt Date: 20170217
  Transmission Date: 20170428
  Serious: Yes (Other)
  Sender: FDA-Public Use
  Company Number: US-PFIZER INC-2017064174

PATIENT
  Age: 64 Year
  Sex: Male

DRUGS (1)
  1. BOSULIF [Suspect]
     Active Substance: BOSUTINIB MONOHYDRATE
     Indication: ACUTE MYELOID LEUKAEMIA
     Dosage: 500 MG, UNK

REACTIONS (5)
  - Pulmonary oedema [Unknown]
  - Diarrhoea [Unknown]
  - Visual impairment [Unknown]
  - Cough [Unknown]
  - Musculoskeletal stiffness [Unknown]
